FAERS Safety Report 8455352 (Version 3)
Quarter: 2016Q4

REPORT INFORMATION
  Report Type: Spontaneous
  Country: US (occurrence: US)
  Receive Date: 20120313
  Receipt Date: 20161028
  Transmission Date: 20170207
  Serious: No
  Sender: FDA-Public Use
  Company Number: US-PFIZER INC-2012062703

PATIENT
  Age: 47 Year
  Sex: Female
  Weight: 121.54 kg

DRUGS (20)
  1. SIMVASTATIN. [Concomitant]
     Active Substance: SIMVASTATIN
     Indication: BLOOD CHOLESTEROL INCREASED
     Dosage: 20 MG, 1X/DAY (1 TABLET AT BEDTIME)
     Route: 048
  2. CLONAZEPAM. [Concomitant]
     Active Substance: CLONAZEPAM
     Dosage: 1 MG, 1X/DAY (1 TABLET)
     Route: 048
  3. LOTRISONE [Concomitant]
     Active Substance: BETAMETHASONE DIPROPIONATE\CLOTRIMAZOLE
     Dosage: UNK, AS NEEDED [BETAMETHASONE DIPROPIONATE: 0.5%]/[CLOTRIMAZOLE: 1%] 1 AS DIRECTED
     Route: 061
  4. LEVOTHYROXINE. [Concomitant]
     Active Substance: LEVOTHYROXINE
     Indication: AUTOIMMUNE THYROIDITIS
     Dosage: UNK
  5. DIOVAN HCT [Concomitant]
     Active Substance: HYDROCHLOROTHIAZIDE\VALSARTAN
     Dosage: 1 DF, 1X/DAY [VALSARTAN 80 MG]/[ HYDROCHLOROTHIAZIDE 12.5 MG] (1 TABLET)
     Route: 048
  6. PERCOCET [Concomitant]
     Active Substance: ACETAMINOPHEN\OXYCODONE HYDROCHLORIDE
     Dosage: 1 DF, AS NEEDED  [OXYCODONE 5 MG]/[ACETAMINOPHEN 325 MG] (1 TABLET EVERY EIGHT HOURS)
     Route: 048
  7. GEODON [Concomitant]
     Active Substance: ZIPRASIDONE HYDROCHLORIDE\ZIPRASIDONE MESYLATE
     Dosage: UNK
  8. LYRICA [Suspect]
     Active Substance: PREGABALIN
     Dosage: 50 MG, 3X/DAY
     Route: 048
     Dates: start: 201202
  9. AMBIEN [Concomitant]
     Active Substance: ZOLPIDEM TARTRATE
     Dosage: 10 MG, 1X/DAY (1 TABLET AT BEDTIME)
     Route: 048
  10. RETIN-A [Concomitant]
     Active Substance: TRETINOIN
     Dosage: UNK UNK, 1X/DAY (1 A SMALL AMOUNT/0.05%)
     Route: 061
  11. KLONOPIN [Concomitant]
     Active Substance: CLONAZEPAM
     Dosage: UNK
  12. HYDROXYZINE HCL [Concomitant]
     Active Substance: HYDROXYZINE HYDROCHLORIDE
     Dosage: UNK UNK, AS NEEDED (FOUR TIMES A DAY 0.5-1 TABLET)
     Route: 048
  13. SYNTHROID [Concomitant]
     Active Substance: LEVOTHYROXINE SODIUM
     Dosage: 200 UG, 1X/DAY (1 TABLET)
     Route: 048
  14. TRAMADOL. [Concomitant]
     Active Substance: TRAMADOL
     Dosage: 100 MG, AS NEEDED (2 TABLET EVERY SIX HOURS)
     Route: 048
  15. XANAX [Concomitant]
     Active Substance: ALPRAZOLAM
     Dosage: 0.5 MG, AS NEEDED (1 TABLET THREE TIMES A DAY)
     Route: 048
  16. METAMUCIL [Concomitant]
     Active Substance: PLANTAGO SEED
     Dosage: UNK UNK, DAILY (30.9%, 1 DOSE)
     Route: 048
  17. LYRICA [Suspect]
     Active Substance: PREGABALIN
     Indication: FIBROMYALGIA
     Dosage: 150 MG, 3X/DAY
     Route: 048
     Dates: start: 2008
  18. LEXAPRO [Concomitant]
     Active Substance: ESCITALOPRAM OXALATE
     Dosage: UNK
  19. CYMBALTA [Concomitant]
     Active Substance: DULOXETINE HYDROCHLORIDE
     Dosage: 60 MG, 1X/DAY (1 CAPSULE)
     Route: 048
  20. METAMUCIL [Concomitant]
     Active Substance: PLANTAGO SEED
     Dosage: UNK UNK, AS NEEDED (1 SCOOP ONCE A DAY)

REACTIONS (2)
  - Pain [Not Recovered/Not Resolved]
  - Red blood cell sedimentation rate increased [Unknown]

NARRATIVE: CASE EVENT DATE: 201109
